FAERS Safety Report 25976549 (Version 1)
Quarter: 2025Q4

REPORT INFORMATION
  Report Type: Spontaneous
  Country: CN (occurrence: CN)
  Receive Date: 20251029
  Receipt Date: 20251029
  Transmission Date: 20260118
  Serious: Yes (Life-Threatening, Hospitalization, Other)
  Sender: ELI LILLY AND COMPANY
  Company Number: CN-ELI_LILLY_AND_COMPANY-CN202510023976

PATIENT
  Age: 59 Year
  Sex: Female
  Weight: 65 kg

DRUGS (1)
  1. SELPERCATINIB [Suspect]
     Active Substance: SELPERCATINIB
     Indication: Lung adenocarcinoma
     Dosage: 160 MG, BID
     Route: 048
     Dates: start: 20250815, end: 20251008

REACTIONS (5)
  - Cardiac arrest [Unknown]
  - Syncope [Recovering/Resolving]
  - Ventricular flutter [Recovering/Resolving]
  - Ventricular tachycardia [Recovering/Resolving]
  - Myocardial infarction [Unknown]

NARRATIVE: CASE EVENT DATE: 20251007
